FAERS Safety Report 17281359 (Version 4)
Quarter: 2020Q1

REPORT INFORMATION
  Report Type: Spontaneous
  Country: PT (occurrence: PT)
  Receive Date: 20200117
  Receipt Date: 20200323
  Transmission Date: 20200409
  Serious: Yes (Hospitalization, Other)
  Sender: FDA-Public Use
  Company Number: PT-AUROBINDO-AUR-APL-2020-002413

PATIENT
  Age: 42 Year
  Sex: Male

DRUGS (7)
  1. IBUPROFEN 600MG [Suspect]
     Active Substance: IBUPROFEN
     Indication: ORTHOPAEDIC PROCEDURE
     Dosage: 600 MILLIGRAM
     Route: 048
  2. ACETAMINOPHEN. [Concomitant]
     Active Substance: ACETAMINOPHEN
     Indication: ORTHOPAEDIC PROCEDURE
     Dosage: 1 GRAM
     Route: 065
  3. ETORICOXIB FILM COATED TABLET 60 MG [Suspect]
     Active Substance: ETORICOXIB
     Indication: ORTHOPAEDIC PROCEDURE
     Dosage: 60 MILLIGRAM, 3 TIMES A DAY (180 MILLIGRAM, ONCE A DAY)
     Route: 048
     Dates: start: 201801
  4. PARACETAMOL [Suspect]
     Active Substance: ACETAMINOPHEN
     Indication: SELF-MEDICATION
  5. ETORICOXIB FILM COATED TABLET 60 MG [Suspect]
     Active Substance: ETORICOXIB
     Indication: SURGERY
  6. IBUPROFEN 600MG [Suspect]
     Active Substance: IBUPROFEN
     Indication: SELF-MEDICATION
  7. PARACETAMOL [Suspect]
     Active Substance: ACETAMINOPHEN
     Indication: ORTHOPAEDIC PROCEDURE
     Dosage: 1 GRAM, UNK
     Route: 048

REACTIONS (12)
  - Pyrexia [Recovered/Resolved]
  - Arthralgia [Recovered/Resolved]
  - Malaise [Recovered/Resolved]
  - Chills [Recovered/Resolved]
  - Haematuria [Recovering/Resolving]
  - Viral infection [Unknown]
  - Restlessness [Recovered/Resolved]
  - Leukocyturia [Recovering/Resolving]
  - Pyelonephritis acute [Recovered/Resolved]
  - Tubulointerstitial nephritis [Recovered/Resolved]
  - Hyperhidrosis [Recovered/Resolved]
  - Intentional product misuse [Unknown]

NARRATIVE: CASE EVENT DATE: 201802
